FAERS Safety Report 4311763-8 (Version None)
Quarter: 2004Q1

REPORT INFORMATION
  Report Type: 
  Country: None (occurrence: None)
  Receive Date: 20040304
  Receipt Date: 20040304
  Transmission Date: 20041129
  Serious: No
  Sender: FDA-Public Use
  Company Number: None

PATIENT

DRUGS (1)
  1. BOTOX COSMETIC [Suspect]

REACTIONS (20)
  - AMNESIA [None]
  - ANOREXIA [None]
  - BACK PAIN [None]
  - BRONCHITIS [None]
  - BURNING SENSATION [None]
  - DYSPEPSIA [None]
  - DYSPNOEA [None]
  - EYE IRRITATION [None]
  - EYE PRURITUS [None]
  - EYELID PTOSIS [None]
  - FATIGUE [None]
  - HEADACHE [None]
  - HYPERTENSION [None]
  - INFLUENZA [None]
  - MUSCULAR WEAKNESS [None]
  - NAUSEA [None]
  - RHINITIS [None]
  - SINUSITIS [None]
  - VISION BLURRED [None]
  - VOMITING [None]
